FAERS Safety Report 6891788-9 (Version None)
Quarter: 2010Q3

REPORT INFORMATION
  Report Type: 
  Country: None (occurrence: None)
  Receive Date: 20100731
  Receipt Date: 20071011
  Transmission Date: 20110219
  Serious: No
  Sender: FDA-Public Use
  Company Number: US-PFIZER INC-2007086321

PATIENT
  Sex: Female
  Weight: 63.6 kg

DRUGS (1)
  1. FLAGYL [Suspect]
     Indication: AMOEBIC DYSENTERY
     Dates: start: 20070901, end: 20071005

REACTIONS (4)
  - HAEMATURIA [None]
  - HYPOAESTHESIA [None]
  - MALAISE [None]
  - PAIN [None]
